FAERS Safety Report 14722744 (Version 1)
Quarter: 2018Q2

REPORT INFORMATION
  Report Type: Spontaneous
  Country: GB (occurrence: GB)
  Receive Date: 20180405
  Receipt Date: 20180405
  Transmission Date: 20180711
  Serious: Yes (Hospitalization)
  Sender: FDA-Public Use
  Company Number: GB-BAUSCH-BL-2018-008293

PATIENT
  Age: 80 Year
  Sex: Male

DRUGS (2)
  1. LATANOPROST. [Suspect]
     Active Substance: LATANOPROST
     Indication: PRODUCT USED FOR UNKNOWN INDICATION
     Dosage: IN EACH EYE.
     Route: 047
  2. TIMOLOL MALEATE. [Suspect]
     Active Substance: TIMOLOL MALEATE
     Indication: GLAUCOMA
     Route: 047
     Dates: start: 20180116, end: 20180210

REACTIONS (6)
  - Malaise [Unknown]
  - Dizziness [Unknown]
  - Palpitations [Unknown]
  - Meniere^s disease [Unknown]
  - Tinnitus [Unknown]
  - Vestibular neuronitis [Not Recovered/Not Resolved]

NARRATIVE: CASE EVENT DATE: 20180121
